FAERS Safety Report 7235562-2 (Version None)
Quarter: 2011Q1

REPORT INFORMATION
  Report Type: 
  Country: None (occurrence: None)
  Receive Date: 20110120
  Receipt Date: 20110112
  Transmission Date: 20110831
  Serious: Yes (Other)
  Sender: FDA-Public Use
  Company Number: PHFR2011GB00699

PATIENT

DRUGS (1)
  1. TEGRETOL [Suspect]
     Dosage: UNK, UNK

REACTIONS (2)
  - DYSPHAGIA [None]
  - CEREBROVASCULAR ACCIDENT [None]
